FAERS Safety Report 17475349 (Version 3)
Quarter: 2020Q1

REPORT INFORMATION
  Report Type: Spontaneous
  Country: US (occurrence: US)
  Receive Date: 20200228
  Receipt Date: 20200304
  Transmission Date: 20200409
  Serious: No
  Sender: FDA-Public Use
  Company Number: US-PFIZER INC-2020088755

PATIENT
  Age: 72 Year
  Sex: Female

DRUGS (1)
  1. LYRICA [Suspect]
     Active Substance: PREGABALIN
     Indication: FIBROMYALGIA
     Dosage: 25 MG, 2X/DAY
     Route: 048
     Dates: start: 201912

REACTIONS (6)
  - Drug ineffective [Unknown]
  - Skin lesion [Unknown]
  - Insomnia [Unknown]
  - Urticaria [Unknown]
  - Pruritus [Unknown]
  - Sleep disorder [Unknown]

NARRATIVE: CASE EVENT DATE: 201912
